FAERS Safety Report 11491444 (Version 1)
Quarter: 2015Q3

REPORT INFORMATION
  Report Type: Spontaneous
  Country: CO (occurrence: CO)
  Receive Date: 20150910
  Receipt Date: 20150910
  Transmission Date: 20151125
  Serious: Yes (Hospitalization, Other)
  Sender: FDA-Public Use
  Company Number: CO-JNJFOC-20150906935

PATIENT
  Age: 74 Year
  Sex: Female
  Weight: 79 kg

DRUGS (1)
  1. STELARA [Suspect]
     Active Substance: USTEKINUMAB
     Indication: PSORIASIS
     Route: 058
     Dates: start: 20140616

REACTIONS (1)
  - Spinal cord operation [Not Recovered/Not Resolved]

NARRATIVE: CASE EVENT DATE: 20150811
